FAERS Safety Report 8493312-6 (Version None)
Quarter: 2012Q3

REPORT INFORMATION
  Report Type: 
  Country: None (occurrence: None)
  Receive Date: 20120706
  Receipt Date: 20120702
  Transmission Date: 20120928
  Serious: No
  Sender: FDA-Public Use
  Company Number: US-PFIZER INC-2012096038

PATIENT
  Sex: Female
  Weight: 562.36 kg

DRUGS (10)
  1. LYRICA [Suspect]
     Indication: PAIN
     Dosage: 100 MG, 4X/DAY
     Route: 048
     Dates: start: 20120201
  2. LYRICA [Suspect]
     Dosage: 75 MG, 2X/DAY
     Route: 048
     Dates: end: 20120501
  3. PROMETHAZINE [Concomitant]
     Dosage: 1 TABLET (25 MG) EVERY 4 TO 6/H
     Route: 048
  4. AMITIZA [Concomitant]
     Dosage: 24 UG, AS NEEDED
     Route: 048
  5. DILAUDID [Concomitant]
     Dosage: 16 MG, 4X/DAY
     Route: 048
  6. OXYCODONE [Concomitant]
     Dosage: 60 MG EVERY 4 TO 6/H
     Route: 048
  7. MIRALAX [Concomitant]
     Dosage: 1 SCOOP AS NEEDED
     Route: 048
  8. XANAX [Concomitant]
     Dosage: 0.5 MG, 3X/DAY
     Route: 048
  9. LYRICA [Suspect]
     Dosage: 100 MG, 2X/DAY
     Route: 048
  10. PREVACID [Concomitant]
     Dosage: 30 MG, 2X/DAY
     Route: 048

REACTIONS (21)
  - OEDEMA PERIPHERAL [None]
  - CONSTIPATION [None]
  - MUSCULOSKELETAL STIFFNESS [None]
  - BALANCE DISORDER [None]
  - GAIT DISTURBANCE [None]
  - NAUSEA [None]
  - DYSURIA [None]
  - POLLAKIURIA [None]
  - ARTHRALGIA [None]
  - TENDERNESS [None]
  - DYSPEPSIA [None]
  - MICTURITION URGENCY [None]
  - DIZZINESS POSTURAL [None]
  - JOINT STIFFNESS [None]
  - FALL [None]
  - SYNCOPE [None]
  - DIZZINESS [None]
  - SOMNAMBULISM [None]
  - JOINT SWELLING [None]
  - PAIN [None]
  - MUSCULAR WEAKNESS [None]
